FAERS Safety Report 25927654 (Version 1)
Quarter: 2025Q4

REPORT INFORMATION
  Report Type: Spontaneous
  Country: CN (occurrence: CN)
  Receive Date: 20251016
  Receipt Date: 20251016
  Transmission Date: 20260118
  Serious: Yes (Hospitalization)
  Sender: COHERUS
  Company Number: CN-SHANGHAI JUNSHI BIOSCIENCES CO., LTD.-CN2025016023

PATIENT

DRUGS (5)
  1. TORIPALIMAB [Suspect]
     Active Substance: TORIPALIMAB
     Indication: Lung neoplasm malignant
     Dosage: 720 MG
     Route: 041
     Dates: start: 20250927, end: 20250927
  2. ETOPOSIDE [Suspect]
     Active Substance: ETOPOSIDE
     Indication: Lung neoplasm malignant
     Dosage: 100 MG, QD
     Route: 041
     Dates: start: 20250927, end: 20250929
  3. ETOPOSIDE [Suspect]
     Active Substance: ETOPOSIDE
     Dosage: 50 MG, QD
     Route: 041
     Dates: start: 20250927, end: 20250929
  4. CISPLATIN [Suspect]
     Active Substance: CISPLATIN
     Indication: Lung neoplasm malignant
     Dosage: 90 MG
     Route: 041
     Dates: start: 20250927, end: 20250927
  5. CISPLATIN [Suspect]
     Active Substance: CISPLATIN
     Dosage: 160 MG, QD
     Route: 041
     Dates: start: 20250928, end: 20250929

REACTIONS (1)
  - Myelosuppression [Recovered/Resolved]

NARRATIVE: CASE EVENT DATE: 20251006
